FAERS Safety Report 7579541-4 (Version None)
Quarter: 2011Q2

REPORT INFORMATION
  Report Type: 
  Country: None (occurrence: None)
  Receive Date: 20110622
  Receipt Date: 20110607
  Transmission Date: 20111010
  Serious: Yes (Hospitalization)
  Sender: FDA-Public Use
  Company Number: 2011MA006899

PATIENT
  Age: 48 Year
  Sex: Female

DRUGS (9)
  1. ALUMNUM [Concomitant]
  2. LEBETALOL [Concomitant]
  3. EPOGEN [Concomitant]
  4. VITAMIN B [Concomitant]
  5. CLONAZEPAM [Suspect]
     Indication: MYOCLONUS
     Dosage: 0.25 MG, BID;
  6. HYDROXIDE [Concomitant]
  7. FOLIC ACID [Concomitant]
  8. FELODIPINE [Concomitant]
  9. CALCIUM CARBONATE [Concomitant]

REACTIONS (3)
  - PYREXIA [None]
  - PANCYTOPENIA [None]
  - CHILLS [None]
